FAERS Safety Report 18549847 (Version 9)
Quarter: 2022Q4

REPORT INFORMATION
  Report Type: Spontaneous
  Country: US (occurrence: US)
  Receive Date: 20201126
  Receipt Date: 20221017
  Transmission Date: 20230112
  Serious: Yes (Other)
  Sender: FDA-Public Use
  Company Number: US-PFIZER INC-2020466225

PATIENT
  Age: 77 Year
  Sex: Female
  Weight: 81.19 kg

DRUGS (3)
  1. IBRANCE [Suspect]
     Active Substance: PALBOCICLIB
     Indication: Breast cancer metastatic
     Dosage: 125 MG, 1X/DAY, FOR 21 DAYS AND OFF 7 DAYS
     Route: 048
     Dates: start: 201909
  2. VITAMINS [Concomitant]
     Active Substance: VITAMINS
     Dosage: UNK, DAILY
  3. EPIPEN [Concomitant]
     Active Substance: EPINEPHRINE
     Dosage: UNK

REACTIONS (9)
  - Retinal haemorrhage [Unknown]
  - Macular degeneration [Unknown]
  - Urticaria [Unknown]
  - Anxiety [Recovered/Resolved]
  - Hypersensitivity [Recovered/Resolved with Sequelae]
  - Paraesthesia [Recovered/Resolved]
  - Pruritus [Recovered/Resolved]
  - COVID-19 [Unknown]
  - Neoplasm progression [Unknown]

NARRATIVE: CASE EVENT DATE: 20210304
